FAERS Safety Report 6876562-1 (Version None)
Quarter: 2010Q3

REPORT INFORMATION
  Report Type: 
  Country: None (occurrence: None)
  Receive Date: 20100727
  Receipt Date: 20100722
  Transmission Date: 20110219
  Serious: Yes (Other)
  Sender: FDA-Public Use
  Company Number: US-CEPHALON-2010003892

PATIENT
  Age: 77 Year
  Sex: Male
  Weight: 69 kg

DRUGS (17)
  1. NUVIGIL [Suspect]
     Indication: SLEEP APNOEA SYNDROME
     Route: 048
     Dates: start: 20100720
  2. FOSAMAX [Concomitant]
     Dates: start: 20030101
  3. KEPPRA [Concomitant]
     Dates: start: 20100201
  4. DILANTIN [Concomitant]
     Dates: start: 20100401
  5. COREG [Concomitant]
     Dates: start: 20000101
  6. LASIX [Concomitant]
     Dates: start: 20000101
  7. DIGOXIN [Concomitant]
     Dates: start: 20000101
  8. ASTELIN [Concomitant]
     Dates: start: 20000101
  9. ALLEGRA [Concomitant]
  10. SPIRIVA [Concomitant]
     Dates: start: 20000101
  11. FLONASE [Concomitant]
     Dates: start: 20000101
  12. QVAR 40 [Concomitant]
     Dates: start: 20070101
  13. METROGEL [Concomitant]
     Dates: start: 20070101
  14. ASPIRIN [Concomitant]
     Dates: start: 20000101
  15. ZOCOR [Concomitant]
     Dates: start: 20000101
  16. TRAZODONE [Concomitant]
     Dates: start: 20000101
  17. FLOMAX [Concomitant]
     Dates: start: 20100201

REACTIONS (1)
  - DYSPNOEA [None]
